FAERS Safety Report 19083951 (Version 4)
Quarter: 2021Q4

REPORT INFORMATION
  Report Type: Report from Study
  Country: US (occurrence: US)
  Receive Date: 20210401
  Receipt Date: 20211215
  Transmission Date: 20220303
  Serious: Yes (Other)
  Sender: FDA-Public Use
  Company Number: US-TAKEDA-US202025287

PATIENT
  Age: 57 Year
  Sex: Female
  Weight: 48 kg

DRUGS (16)
  1. TEDUGLUTIDE [Suspect]
     Active Substance: TEDUGLUTIDE
     Indication: Short-bowel syndrome
     Dosage: 0.118 MILLILITER, QD
     Route: 058
     Dates: start: 20171207
  2. TEDUGLUTIDE [Suspect]
     Active Substance: TEDUGLUTIDE
     Indication: Short-bowel syndrome
     Dosage: 0.118 MILLILITER, QD
     Route: 058
     Dates: start: 20171207
  3. TEDUGLUTIDE [Suspect]
     Active Substance: TEDUGLUTIDE
     Indication: Short-bowel syndrome
     Dosage: 0.118 MILLILITER, QD
     Route: 058
     Dates: start: 20171207
  4. TEDUGLUTIDE [Suspect]
     Active Substance: TEDUGLUTIDE
     Indication: Short-bowel syndrome
     Dosage: 0.118 MILLILITER, QD
     Route: 058
     Dates: start: 20171207
  5. TEDUGLUTIDE [Suspect]
     Active Substance: TEDUGLUTIDE
     Indication: Crohn^s disease
     Dosage: 0.118 MILLILITER, QD
     Route: 058
     Dates: start: 201712
  6. TEDUGLUTIDE [Suspect]
     Active Substance: TEDUGLUTIDE
     Indication: Crohn^s disease
     Dosage: 0.118 MILLILITER, QD
     Route: 058
     Dates: start: 201712
  7. TEDUGLUTIDE [Suspect]
     Active Substance: TEDUGLUTIDE
     Indication: Crohn^s disease
     Dosage: 0.118 MILLILITER, QD
     Route: 058
     Dates: start: 201712
  8. TEDUGLUTIDE [Suspect]
     Active Substance: TEDUGLUTIDE
     Indication: Crohn^s disease
     Dosage: 0.118 MILLILITER, QD
     Route: 058
     Dates: start: 201712
  9. TEDUGLUTIDE [Suspect]
     Active Substance: TEDUGLUTIDE
     Indication: Gastrointestinal stoma complication
     Dosage: 0.118 MILLILITER, QD
     Route: 058
  10. TEDUGLUTIDE [Suspect]
     Active Substance: TEDUGLUTIDE
     Indication: Gastrointestinal stoma complication
     Dosage: 0.118 MILLILITER, QD
     Route: 058
  11. TEDUGLUTIDE [Suspect]
     Active Substance: TEDUGLUTIDE
     Indication: Gastrointestinal stoma complication
     Dosage: 0.118 MILLILITER, QD
     Route: 058
  12. TEDUGLUTIDE [Suspect]
     Active Substance: TEDUGLUTIDE
     Indication: Gastrointestinal stoma complication
     Dosage: 0.118 MILLILITER, QD
     Route: 058
  13. STELARA [Suspect]
     Active Substance: USTEKINUMAB
     Indication: Product used for unknown indication
     Route: 065
  14. PREDNISOLONE [Concomitant]
     Active Substance: PREDNISOLONE
     Indication: Product used for unknown indication
     Dosage: 15 MILLIGRAM/5 ML
     Route: 065
  15. BUDESONIDE [Concomitant]
     Active Substance: BUDESONIDE
     Indication: Product used for unknown indication
     Dosage: 0.25MILLIGRAM/2 ML
     Route: 065
  16. FENTANYL TRANSDERMAL SYSTEM [Concomitant]
     Active Substance: FENTANYL
     Indication: Product used for unknown indication

REACTIONS (15)
  - Struck by lightning [Unknown]
  - Dehydration [Unknown]
  - Hot flush [Unknown]
  - Blood creatinine increased [Unknown]
  - Skin atrophy [Unknown]
  - Weight fluctuation [Unknown]
  - Therapy interrupted [Unknown]
  - Malaise [Unknown]
  - Product availability issue [Unknown]
  - Product use complaint [Unknown]
  - Needle issue [Unknown]
  - Incorrect dose administered [Unknown]
  - Fatigue [Unknown]
  - Product preparation error [Unknown]
  - Nausea [Unknown]

NARRATIVE: CASE EVENT DATE: 20210730
